FAERS Safety Report 6382552-8 (Version None)
Quarter: 2009Q3

REPORT INFORMATION
  Report Type: 
  Country: None (occurrence: None)
  Receive Date: 20090930
  Receipt Date: 20090925
  Transmission Date: 20100115
  Serious: Yes (Hospitalization)
  Sender: FDA-Public Use
  Company Number: A0809077A

PATIENT
  Age: 51 Year
  Sex: Male

DRUGS (15)
  1. ADVAIR DISKUS 100/50 [Suspect]
     Indication: ASTHMA
     Dosage: 2PUFF TWICE PER DAY
     Route: 055
  2. ALBUTEROL [Concomitant]
  3. ASPIRIN [Concomitant]
  4. SIMVASTATIN [Concomitant]
  5. COLCHICINE [Concomitant]
  6. LORAZEPAM [Concomitant]
  7. WARFARIN [Concomitant]
  8. UNSPECIFIED MEDICATION [Concomitant]
  9. PERCOCET [Concomitant]
  10. CARVEDILOL [Concomitant]
  11. IMDUR [Concomitant]
  12. HYDRALAZINE [Concomitant]
  13. BUDESONIDE [Concomitant]
  14. CALCIUM ACETATE [Concomitant]
  15. HUMULIN 70/30 [Concomitant]

REACTIONS (9)
  - ASTHMA [None]
  - CHOKING [None]
  - CONSTIPATION [None]
  - CYANOSIS [None]
  - DIARRHOEA [None]
  - FLUID RETENTION [None]
  - ILL-DEFINED DISORDER [None]
  - NASOPHARYNGITIS [None]
  - PULMONARY OEDEMA [None]
